FAERS Safety Report 23935177 (Version 1)
Quarter: 2024Q2

REPORT INFORMATION
  Report Type: Spontaneous
  Country: US (occurrence: US)
  Receive Date: 20240604
  Receipt Date: 20240604
  Transmission Date: 20240716
  Serious: No
  Sender: FDA-Public Use
  Company Number: US-AMGEN-USASP2024106052

PATIENT
  Age: 57 Year
  Sex: Male

DRUGS (5)
  1. RITUXIMAB [Suspect]
     Active Substance: RITUXIMAB
     Indication: Myelin oligodendrocyte glycoprotein antibody-associated disease
     Dosage: UNK
     Route: 065
     Dates: start: 202203
  2. FENOFIBRATE [Concomitant]
     Active Substance: FENOFIBRATE
  3. SILDENAFIL [Concomitant]
     Active Substance: SILDENAFIL
  4. RIFAMPIN [Concomitant]
     Active Substance: RIFAMPIN
     Indication: Latent tuberculosis
     Route: 048
  5. PREDNISONE [Concomitant]
     Active Substance: PREDNISONE
     Indication: Myelin oligodendrocyte glycoprotein antibody-associated disease
     Dosage: 60 MILLIGRAM, QD
     Route: 065
     Dates: start: 202203

REACTIONS (2)
  - Drug effective for unapproved indication [Unknown]
  - Off label use [Unknown]

NARRATIVE: CASE EVENT DATE: 20220301
